FAERS Safety Report 11033154 (Version 2)
Quarter: 2015Q2

REPORT INFORMATION
  Report Type: Spontaneous
  Country: NO (occurrence: NO)
  Receive Date: 20150415
  Receipt Date: 20150421
  Transmission Date: 20150821
  Serious: Yes (Other)
  Sender: FDA-Public Use
  Company Number: PHHY2015NO036807

PATIENT
  Sex: Female

DRUGS (1)
  1. ACLASTA [Suspect]
     Active Substance: ZOLEDRONIC ACID
     Indication: PRODUCT USED FOR UNKNOWN INDICATION
     Dosage: UNK
     Route: 042
     Dates: start: 20150316

REACTIONS (15)
  - Abdominal pain upper [Unknown]
  - Influenza [Unknown]
  - Nasal congestion [Unknown]
  - Pyrexia [Not Recovered/Not Resolved]
  - Headache [Unknown]
  - Chills [Unknown]
  - Muscle spasms [Unknown]
  - Musculoskeletal stiffness [Unknown]
  - Malaise [Unknown]
  - Chest pain [Unknown]
  - Vomiting [Unknown]
  - Bone pain [Unknown]
  - Nausea [Unknown]
  - Tendonitis [Unknown]
  - Pain [Not Recovered/Not Resolved]

NARRATIVE: CASE EVENT DATE: 20150316
